FAERS Safety Report 13697454 (Version 1)
Quarter: 2017Q2

REPORT INFORMATION
  Report Type: Spontaneous
  Country: US (occurrence: US)
  Receive Date: 20170628
  Receipt Date: 20170628
  Transmission Date: 20170830
  Serious: Yes (Death)
  Sender: FDA-Public Use
  Company Number: US-BAYER-2017-119392

PATIENT
  Age: 2 Year
  Sex: Female

DRUGS (1)
  1. BAYER LOW DOSE [Suspect]
     Active Substance: ASPIRIN
     Dosage: UNK UNK, PRN
     Route: 048

REACTIONS (2)
  - Reye^s syndrome [Fatal]
  - Drug administered to patient of inappropriate age [Unknown]
